FAERS Safety Report 26118393 (Version 1)
Quarter: 2025Q4

REPORT INFORMATION
  Report Type: Spontaneous
  Country: EU (occurrence: EU)
  Receive Date: 20251203
  Receipt Date: 20251203
  Transmission Date: 20260118
  Serious: Yes (Other)
  Sender: MYLAN
  Company Number: EU-SUN PHARMACEUTICAL INDUSTRIES INC-2025RR-535976

PATIENT
  Age: 53 Year
  Sex: Female

DRUGS (20)
  1. SUNITINIB [Suspect]
     Active Substance: SUNITINIB
     Indication: Renal cancer
     Dosage: UNK
  2. SUNITINIB [Suspect]
     Active Substance: SUNITINIB
     Dosage: UNK
     Route: 065
  3. SUNITINIB [Suspect]
     Active Substance: SUNITINIB
     Dosage: UNK
     Route: 065
  4. SUNITINIB [Suspect]
     Active Substance: SUNITINIB
     Dosage: UNK
  5. SORAFENIB [Suspect]
     Active Substance: SORAFENIB
     Indication: Renal cancer
     Dosage: UNK
  6. SORAFENIB [Suspect]
     Active Substance: SORAFENIB
     Dosage: UNK
     Route: 065
  7. SORAFENIB [Suspect]
     Active Substance: SORAFENIB
     Dosage: UNK
     Route: 065
  8. SORAFENIB [Suspect]
     Active Substance: SORAFENIB
     Dosage: UNK
  9. CABOZANTINIB [Suspect]
     Active Substance: CABOZANTINIB
     Indication: Renal cancer
     Dosage: UNK
  10. CABOZANTINIB [Suspect]
     Active Substance: CABOZANTINIB
     Dosage: UNK
     Route: 065
  11. CABOZANTINIB [Suspect]
     Active Substance: CABOZANTINIB
     Dosage: UNK
     Route: 065
  12. CABOZANTINIB [Suspect]
     Active Substance: CABOZANTINIB
     Dosage: UNK
  13. AXITINIB [Suspect]
     Active Substance: AXITINIB
     Indication: Renal cancer
     Dosage: UNK
  14. AXITINIB [Suspect]
     Active Substance: AXITINIB
     Dosage: UNK
     Route: 065
  15. AXITINIB [Suspect]
     Active Substance: AXITINIB
     Dosage: UNK
     Route: 065
  16. AXITINIB [Suspect]
     Active Substance: AXITINIB
     Dosage: UNK
  17. NIVOLUMAB [Suspect]
     Active Substance: NIVOLUMAB
     Indication: Renal cancer
     Dosage: UNK
  18. NIVOLUMAB [Suspect]
     Active Substance: NIVOLUMAB
     Dosage: UNK
     Route: 065
  19. NIVOLUMAB [Suspect]
     Active Substance: NIVOLUMAB
     Dosage: UNK
     Route: 065
  20. NIVOLUMAB [Suspect]
     Active Substance: NIVOLUMAB
     Dosage: UNK

REACTIONS (2)
  - Disease progression [Unknown]
  - Metastasis [Unknown]
